FAERS Safety Report 5644072-5 (Version None)
Quarter: 2008Q1

REPORT INFORMATION
  Report Type: 
  Country: None (occurrence: None)
  Receive Date: 20080226
  Receipt Date: 20080215
  Transmission Date: 20080703
  Serious: No
  Sender: FDA-Public Use
  Company Number: B0508890A

PATIENT
  Age: 8 Year
  Sex: Female

DRUGS (4)
  1. AUGMENTIN '250' [Suspect]
     Indication: OTITIS MEDIA
     Dosage: ORAL
     Route: 048
     Dates: start: 20080209, end: 20080212
  2. LACT.ACID-PRODUCING ORGS [Concomitant]
  3. MINOCYCLINE HYDROCHLORIDE [Concomitant]
  4. LORATADINE [Concomitant]

REACTIONS (2)
  - DRUG ERUPTION [None]
  - ERYTHEMA INFECTIOSUM [None]
